FAERS Safety Report 21984722 (Version 5)
Quarter: 2023Q2

REPORT INFORMATION
  Report Type: Spontaneous
  Country: US (occurrence: US)
  Receive Date: 20230213
  Receipt Date: 20230404
  Transmission Date: 20230722
  Serious: No
  Sender: FDA-Public Use
  Company Number: US-PFIZER INC-PV202300022709

PATIENT
  Sex: Female

DRUGS (2)
  1. FRAGMIN [Suspect]
     Active Substance: DALTEPARIN SODIUM
     Dosage: 0.2 ML, 1X/DAY (INJECT ONE SYRINGE UNDER THE SKIN ONE TIME DAILY FOR 14 DAYS)
     Route: 058
     Dates: start: 20230125
  2. FRAGMIN [Suspect]
     Active Substance: DALTEPARIN SODIUM
     Dosage: UNK

REACTIONS (2)
  - Device failure [Unknown]
  - Needle issue [Unknown]
